FAERS Safety Report 9552749 (Version 1)
Quarter: 2013Q3

REPORT INFORMATION
  Report Type: Spontaneous
  Country: US (occurrence: None)
  Receive Date: 20130805
  Receipt Date: 20130805
  Transmission Date: 20140515
  Serious: Yes (Life-Threatening, Other)
  Sender: FDA-Public Use
  Company Number: OPCR20130158

PATIENT
  Age: 28 Year
  Sex: Male
  Weight: 90.72 kg

DRUGS (3)
  1. OPANA ER [Suspect]
     Indication: PAIN
     Route: 048
     Dates: start: 20130313, end: 20130313
  2. OPANA [Suspect]
     Indication: PAIN
     Route: 048
     Dates: start: 20130313, end: 20130313
  3. VICODIN [Suspect]
     Indication: PRODUCT USED FOR UNKNOWN INDICATION
     Route: 048

REACTIONS (6)
  - Respiratory arrest [None]
  - Poisoning [None]
  - Miosis [None]
  - Incoherent [None]
  - Toxicity to various agents [None]
  - Pyrexia [None]
